FAERS Safety Report 5477471-5 (Version None)
Quarter: 2007Q4

REPORT INFORMATION
  Report Type: 
  Country: None (occurrence: None)
  Receive Date: 20071004
  Receipt Date: 20070926
  Transmission Date: 20080405
  Serious: Yes (Hospitalization)
  Sender: FDA-Public Use
  Company Number: US-PFIZER INC-2007069304

PATIENT
  Sex: Female
  Weight: 64 kg

DRUGS (6)
  1. SUTENT [Suspect]
     Indication: RENAL CELL CARCINOMA STAGE UNSPECIFIED
     Route: 048
  2. PROTONIX [Concomitant]
     Route: 048
  3. SOLU-CORTEF [Concomitant]
     Route: 048
     Dates: start: 20060214
  4. DYAZIDE [Concomitant]
     Route: 048
     Dates: start: 20070710
  5. LEVOTHYROXINE SODIUM [Concomitant]
     Route: 048
     Dates: start: 20070811
  6. ATENOLOL [Concomitant]
     Route: 048
     Dates: start: 20070811

REACTIONS (2)
  - DEHYDRATION [None]
  - RENAL FAILURE [None]
